FAERS Safety Report 8075575-4 (Version None)
Quarter: 2012Q1

REPORT INFORMATION
  Report Type: 
  Country: None (occurrence: None)
  Receive Date: 20120127
  Receipt Date: 20120120
  Transmission Date: 20120608
  Serious: Yes (Death, Hospitalization, Other)
  Sender: FDA-Public Use
  Company Number: FR-BRISTOL-MYERS SQUIBB COMPANY-15918006

PATIENT
  Age: 75 Year
  Sex: Male

DRUGS (5)
  1. HYDREA [Suspect]
     Dosage: 21-JUN-2011 TO 24-JUN-2011 AND 27-JUN-2011 TO 30-JUN-2011.
     Route: 042
     Dates: start: 20110621
  2. MIDAZOLAM [Suspect]
     Route: 042
     Dates: start: 20110621, end: 20110701
  3. DOXORUBICIN HCL [Suspect]
     Route: 042
     Dates: start: 20110623
  4. SUFENTANIL CITRATE [Suspect]
     Route: 042
     Dates: start: 20110621, end: 20110701
  5. METOCLOPRAMIDE [Suspect]
     Route: 042
     Dates: start: 20110621, end: 20110628

REACTIONS (5)
  - THROMBOCYTOPENIA [None]
  - LIVER DISORDER [None]
  - ENTEROCOCCAL SEPSIS [None]
  - NEUTROPENIA [None]
  - HYPERBILIRUBINAEMIA [None]
